FAERS Safety Report 7929790-8 (Version None)
Quarter: 2011Q4

REPORT INFORMATION
  Report Type: 
  Country: None (occurrence: None)
  Receive Date: 20111117
  Receipt Date: 20111117
  Transmission Date: 20120403
  Serious: Yes (Hospitalization, Disabling, Other)
  Sender: FDA-Public Use
  Company Number: None

PATIENT
  Sex: Female

DRUGS (1)
  1. LASIX [Suspect]

REACTIONS (19)
  - DIZZINESS [None]
  - DIARRHOEA [None]
  - CHILLS [None]
  - CONTUSION [None]
  - THIRST [None]
  - HEADACHE [None]
  - MUSCULAR WEAKNESS [None]
  - DRY MOUTH [None]
  - OROPHARYNGEAL PAIN [None]
  - RESTLESSNESS [None]
  - SLUGGISHNESS [None]
  - URINARY TRACT DISORDER [None]
  - DYSPNOEA [None]
  - CONFUSIONAL STATE [None]
  - PRURITUS [None]
  - CONSTIPATION [None]
  - DEHYDRATION [None]
  - MYALGIA [None]
  - SWOLLEN TONGUE [None]
